FAERS Safety Report 7722950-0 (Version None)
Quarter: 2011Q3

REPORT INFORMATION
  Report Type: 
  Country: None (occurrence: None)
  Receive Date: 20110825
  Receipt Date: 20110817
  Transmission Date: 20111222
  Serious: Yes (Hospitalization)
  Sender: FDA-Public Use
  Company Number: 15827041

PATIENT
  Age: 65 Year
  Sex: Male

DRUGS (4)
  1. APIXABAN [Suspect]
     Indication: EMBOLISM
     Dosage: 10 MILLIGRAM 1 DAY, ORAL
     Route: 048
     Dates: start: 20110513
  2. WARFARIN SODIUM [Suspect]
     Indication: EMBOLISM
     Dosage: 1 DAY, ORAL
     Route: 048
     Dates: start: 20110513
  3. ENOXAPARIN SODIUM [Suspect]
     Indication: EMBOLISM
     Dosage: 180 MILLIGRAM 1 DAY, SC
     Route: 058
     Dates: start: 20110513, end: 20110520
  4. PLACEBO [Suspect]
     Indication: EMBOLISM
     Dosage: ORAL
     Route: 048
     Dates: start: 20110513

REACTIONS (2)
  - INFECTED SKIN ULCER [None]
  - DISEASE PROGRESSION [None]
